FAERS Safety Report 4513828-4 (Version None)
Quarter: 2004Q4

REPORT INFORMATION
  Report Type: 
  Country: None (occurrence: None)
  Receive Date: 20041130
  Receipt Date: 20040910
  Transmission Date: 20050328
  Serious: No
  Sender: FDA-Public Use
  Company Number: US-GLAXOSMITHKLINE-A0525237A

PATIENT
  Age: 57 Year
  Sex: Female

DRUGS (7)
  1. WELLBUTRIN XL [Suspect]
     Indication: DEPRESSION
     Dosage: 300MG PER DAY
     Route: 048
     Dates: start: 20040902, end: 20040906
  2. CELEXA [Concomitant]
  3. SYNTHROID [Concomitant]
  4. ESTRADIOL [Concomitant]
  5. MAXZIDE [Concomitant]
  6. XANAX [Concomitant]
  7. ZOCOR [Concomitant]

REACTIONS (2)
  - ARTHRALGIA [None]
  - MYALGIA [None]
